FAERS Safety Report 9285954 (Version 1)
Quarter: 2013Q2

REPORT INFORMATION
  Report Type: Spontaneous
  Country: AT (occurrence: AT)
  Receive Date: 20130513
  Receipt Date: 20130513
  Transmission Date: 20140414
  Serious: Yes (Life-Threatening)
  Sender: FDA-Public Use
  Company Number: AT-ROCHE-1138280

PATIENT
  Age: 67 Year
  Sex: Female

DRUGS (1)
  1. ACTILYSE [Suspect]
     Indication: ISCHAEMIC STROKE
     Route: 065
     Dates: start: 20120914

REACTIONS (7)
  - Agitation [Unknown]
  - Blood pressure increased [Unknown]
  - Hemiplegia [Unknown]
  - Haemorrhage intracranial [Unknown]
  - Intraventricular haemorrhage [Unknown]
  - Depressed level of consciousness [Unknown]
  - Pneumonia aspiration [Unknown]
